FAERS Safety Report 13770826 (Version 1)
Quarter: 2017Q3

REPORT INFORMATION
  Report Type: Spontaneous
  Country: US (occurrence: US)
  Receive Date: 20170719
  Receipt Date: 20170719
  Transmission Date: 20171127
  Serious: No
  Sender: FDA-Public Use
  Company Number: None

PATIENT
  Age: 49 Year
  Sex: Female
  Weight: 150 kg

DRUGS (1)
  1. EPINEPHRINE 1 MG/ML [Suspect]
     Active Substance: EPINEPHRINE
     Indication: HYPOTENSION
     Dosage: OTHER DOSE:MG;OTHER FREQUENCY:TITRATED PER PROTO;?
     Route: 041
     Dates: start: 20170515, end: 20170719

REACTIONS (4)
  - Product formulation issue [None]
  - Drug dispensing error [None]
  - Wrong drug administered [None]
  - Unintentional use for unapproved indication [None]

NARRATIVE: CASE EVENT DATE: 20170719
